FAERS Safety Report 4793458-X (Version None)
Quarter: 2005Q4

REPORT INFORMATION
  Report Type: 
  Country: None (occurrence: None)
  Receive Date: 20051011
  Receipt Date: 20050324
  Transmission Date: 20060501
  Serious: No
  Sender: FDA-Public Use
  Company Number: US-BRISTOL-MYERS SQUIBB COMPANY-12910907

PATIENT
  Age: 64 Year
  Sex: Female
  Weight: 136 kg

DRUGS (5)
  1. GLUCOPHAGE XR [Suspect]
     Dosage: DOSE INCREASED TO 1500MG AND THEN TO CURRENT DOSE OF 2000MG
     Route: 048
  2. GLUCOTROL [Concomitant]
  3. ACTOS [Concomitant]
  4. LIPITOR [Concomitant]
  5. ENALAPRIL [Concomitant]

REACTIONS (2)
  - ABDOMINAL PAIN [None]
  - FLATULENCE [None]
